FAERS Safety Report 16274377 (Version 1)
Quarter: 2019Q2

REPORT INFORMATION
  Report Type: Spontaneous
  Country: US (occurrence: US)
  Receive Date: 20190504
  Receipt Date: 20190504
  Transmission Date: 20190711
  Serious: No
  Sender: FDA-Public Use
  Company Number: US-TEVA-2019-US-1045916

PATIENT
  Sex: Female

DRUGS (2)
  1. METOPROLOL SUCCINATE. [Suspect]
     Active Substance: METOPROLOL SUCCINATE
     Indication: TACHYARRHYTHMIA
     Dosage: EXTENDED RELEASE
     Dates: start: 201901, end: 20190312
  2. VALSARTAN. [Concomitant]
     Active Substance: VALSARTAN
     Indication: BLOOD PRESSURE MEASUREMENT

REACTIONS (1)
  - Raynaud^s phenomenon [Unknown]
